FAERS Safety Report 11874009 (Version 2)
Quarter: 2016Q3

REPORT INFORMATION
  Report Type: Spontaneous
  Country: CA (occurrence: CA)
  Receive Date: 20151229
  Receipt Date: 20160927
  Transmission Date: 20161109
  Serious: Yes (Other)
  Sender: FDA-Public Use
  Company Number: CA-APOTEX-2015AP015464

PATIENT
  Age: 24 Year
  Sex: Male

DRUGS (4)
  1. APO-OLANZAPINE ODT [Suspect]
     Active Substance: OLANZAPINE
     Dosage: 10 MG/DAY (ORAL DISSOLVING TABLET)
     Route: 048
  2. APO-OLANZAPINE ODT [Suspect]
     Active Substance: OLANZAPINE
     Dosage: 10 MG/DAY
     Route: 065
  3. APO-OLANZAPINE ODT [Suspect]
     Active Substance: OLANZAPINE
     Dosage: 7.5 MG/DAY
     Route: 048
  4. APO-OLANZAPINE ODT [Suspect]
     Active Substance: OLANZAPINE
     Indication: SCHIZOPHRENIA
     Dosage: 20 MG/DAY
     Route: 065

REACTIONS (3)
  - Disease recurrence [Recovered/Resolved]
  - Oculogyric crisis [Recovered/Resolved]
  - Psychotic disorder [Recovered/Resolved]
